FAERS Safety Report 25134760 (Version 1)
Quarter: 2025Q1

REPORT INFORMATION
  Report Type: Spontaneous
  Country: US (occurrence: US)
  Receive Date: 20250328
  Receipt Date: 20250328
  Transmission Date: 20250409
  Serious: Yes (Hospitalization)
  Sender: MYLAN
  Company Number: US-MYLANLABS-2025M1026044

PATIENT
  Age: 26 Year
  Sex: Male

DRUGS (6)
  1. SPIRONOLACTONE [Suspect]
     Active Substance: SPIRONOLACTONE
     Indication: Hypertension
  2. SPIRONOLACTONE [Suspect]
     Active Substance: SPIRONOLACTONE
     Indication: Atrial fibrillation
  3. SPIRONOLACTONE [Suspect]
     Active Substance: SPIRONOLACTONE
     Indication: Ejection fraction decreased
  4. BUMETANIDE [Suspect]
     Active Substance: BUMETANIDE
     Indication: Hypertension
  5. BUMETANIDE [Suspect]
     Active Substance: BUMETANIDE
     Indication: Atrial fibrillation
  6. BUMETANIDE [Suspect]
     Active Substance: BUMETANIDE
     Indication: Ejection fraction decreased

REACTIONS (1)
  - Hypokalaemia [Recovering/Resolving]
